FAERS Safety Report 6689692-4 (Version None)
Quarter: 2010Q2

REPORT INFORMATION
  Report Type: 
  Country: None (occurrence: None)
  Receive Date: 20100421
  Receipt Date: 20100419
  Transmission Date: 20101027
  Serious: Yes (Other)
  Sender: FDA-Public Use
  Company Number: US-TEVA-197147USA

PATIENT
  Sex: Female
  Weight: 50.848 kg

DRUGS (1)
  1. CLARAVIS [Suspect]
     Route: 048
     Dates: start: 20090422, end: 20090518

REACTIONS (2)
  - PREMATURE LABOUR [None]
  - UNINTENDED PREGNANCY [None]
